FAERS Safety Report 18023596 (Version 2)
Quarter: 2020Q3

REPORT INFORMATION
  Report Type: Report from Study
  Country: CA (occurrence: CA)
  Receive Date: 20200714
  Receipt Date: 20200807
  Transmission Date: 20201103
  Serious: Yes (Hospitalization)
  Sender: FDA-Public Use
  Company Number: CA-ACTELION-A-NJ2020-201482

PATIENT
  Sex: Male

DRUGS (16)
  1. FUROSEMIDE. [Concomitant]
     Active Substance: FUROSEMIDE
  2. TAMSULOSIN [Concomitant]
     Active Substance: TAMSULOSIN
  3. MORPHINE [Concomitant]
     Active Substance: MORPHINE
  4. OLANZAPINE. [Concomitant]
     Active Substance: OLANZAPINE
  5. UPTRAVI [Suspect]
     Active Substance: SELEXIPAG
     Dosage: 1600 MCG
     Route: 048
  6. NORTRIPTYLINE [Concomitant]
     Active Substance: NORTRIPTYLINE
  7. ZOPICLONE [Concomitant]
     Active Substance: ZOPICLONE
  8. TRACLEER [Concomitant]
     Active Substance: BOSENTAN
     Indication: PULMONARY ARTERIAL HYPERTENSION
  9. PANTOPRAZOLE [Concomitant]
     Active Substance: PANTOPRAZOLE
  10. SILDENAFIL. [Concomitant]
     Active Substance: SILDENAFIL
  11. SPIRONOLACTONE. [Concomitant]
     Active Substance: SPIRONOLACTONE
  12. BOSENTAN. [Concomitant]
     Active Substance: BOSENTAN
  13. LEVOTHYROXINE. [Concomitant]
     Active Substance: LEVOTHYROXINE
  14. UPTRAVI [Suspect]
     Active Substance: SELEXIPAG
     Indication: PULMONARY ARTERIAL HYPERTENSION
     Dosage: 600 MCG
     Route: 048
     Dates: start: 20200112
  15. ALLOPURINOL. [Concomitant]
     Active Substance: ALLOPURINOL
  16. WARFARIN [Concomitant]
     Active Substance: WARFARIN

REACTIONS (4)
  - Ankle fracture [Recovering/Resolving]
  - Fall [Recovering/Resolving]
  - Chest discomfort [Recovering/Resolving]
  - Joint dislocation [Recovering/Resolving]
